FAERS Safety Report 18158121 (Version 1)
Quarter: 2020Q3

REPORT INFORMATION
  Report Type: Report from Study
  Country: CA (occurrence: CA)
  Receive Date: 20200817
  Receipt Date: 20200817
  Transmission Date: 20201103
  Serious: Yes (Other)
  Sender: FDA-Public Use
  Company Number: CA-PFIZER INC-2020314644

PATIENT
  Age: 31 Year
  Sex: Female

DRUGS (28)
  1. ETANERCEPT [Suspect]
     Active Substance: ETANERCEPT
     Indication: ANKYLOSING SPONDYLITIS
     Dosage: 50 MG, WEEKLY
     Route: 058
  2. ELOCOM [Concomitant]
     Active Substance: MOMETASONE FUROATE
     Route: 065
  3. LOLO [Concomitant]
     Active Substance: ETHINYL ESTRADIOL\NORETHINDRONE ACETATE
     Indication: ORAL CONTRACEPTION
     Dosage: 1 DF, 1X/DAY
     Route: 048
  4. TARO?MOMETASONE [Concomitant]
     Route: 065
  5. ETANERCEPT [Suspect]
     Active Substance: ETANERCEPT
     Dosage: 50 MG, WEEKLY
     Route: 058
  6. APO FLUCONAZOLE [Concomitant]
     Dosage: 150 MG
     Route: 065
  7. KETOCONAZOLE. [Concomitant]
     Active Substance: KETOCONAZOLE
     Route: 065
  8. APO CELECOXIB [Concomitant]
     Active Substance: CELECOXIB
     Dosage: 100 MG
     Route: 065
  9. METREX [METRONIDAZOLE] [Concomitant]
     Active Substance: METRONIDAZOLE
     Dosage: 250 MG
     Route: 065
  10. NAPROXEN. [Suspect]
     Active Substance: NAPROXEN
     Dosage: 220 MG, 3X/DAY
     Route: 065
  11. APO?AMOXI [Concomitant]
     Active Substance: AMOXICILLIN
     Dosage: 500 MG
     Route: 065
  12. CIMZIA [Concomitant]
     Active Substance: CERTOLIZUMAB PEGOL
     Dosage: UNK
     Route: 065
  13. NASONEX [Concomitant]
     Active Substance: MOMETASONE FUROATE
     Dosage: 50 UG
     Route: 065
  14. PLAN B [Concomitant]
     Active Substance: LEVONORGESTREL
     Route: 065
  15. JAMP AZITHROMYCIN [Concomitant]
     Active Substance: AZITHROMYCIN
     Dosage: 250 MG
     Route: 065
  16. TRI?CYCLEN [Concomitant]
     Active Substance: ETHINYL ESTRADIOL\NORGESTIMATE
     Route: 065
  17. LOPROX [Concomitant]
     Active Substance: CICLOPIROX\CICLOPIROX OLAMINE
     Route: 065
  18. PREDNISONE. [Suspect]
     Active Substance: PREDNISONE
     Dosage: 75 MG
     Route: 065
  19. EPIPEN [Concomitant]
     Active Substance: EPINEPHRINE
     Route: 065
  20. FUSIDATE SODIUM [Concomitant]
     Active Substance: FUSIDATE SODIUM
     Route: 065
  21. PEN VK [Concomitant]
     Active Substance: PENICILLIN V POTASSIUM
     Dosage: 300 MG
     Route: 065
  22. PMS?CETIRIZINE [Concomitant]
     Active Substance: CETIRIZINE HYDROCHLORIDE
     Dosage: 20 MG
     Route: 065
  23. CELEBREX [Suspect]
     Active Substance: CELECOXIB
     Dosage: 100 MG, 2X/DAY
     Route: 065
  24. ETANERCEPT [Suspect]
     Active Substance: ETANERCEPT
     Dosage: 50 MG, WEEKLY
     Route: 058
  25. NAPROXEN. [Suspect]
     Active Substance: NAPROXEN
     Dosage: 1 DF
     Route: 065
  26. PREDNISONE. [Suspect]
     Active Substance: PREDNISONE
     Dosage: 50 MG
     Route: 065
  27. HYDERM [HYDROCORTISONE] [Concomitant]
     Route: 065
  28. METFORMIN [Concomitant]
     Active Substance: METFORMIN HYDROCHLORIDE
     Dosage: 500 MG
     Route: 065

REACTIONS (9)
  - Arthralgia [Not Recovered/Not Resolved]
  - Drug ineffective [Not Recovered/Not Resolved]
  - Neck pain [Not Recovered/Not Resolved]
  - Ankylosing spondylitis [Not Recovered/Not Resolved]
  - Back pain [Not Recovered/Not Resolved]
  - Gastrointestinal disorder [Not Recovered/Not Resolved]
  - Muscle spasms [Not Recovered/Not Resolved]
  - Drug intolerance [Not Recovered/Not Resolved]
  - Injection site pain [Not Recovered/Not Resolved]
